FAERS Safety Report 9331948 (Version 2)
Quarter: 2013Q2

REPORT INFORMATION
  Report Type: Spontaneous
  Country: US (occurrence: US)
  Receive Date: 20130605
  Receipt Date: 20130620
  Transmission Date: 20140414
  Serious: Yes (Other)
  Sender: FDA-Public Use
  Company Number: CHPA2013US009142

PATIENT
  Age: 62 Year
  Sex: Female

DRUGS (3)
  1. EXCEDRIN PM [Suspect]
     Indication: INSOMNIA
     Dosage: 2 DF, UNK
     Route: 048
     Dates: end: 2012
  2. LORAZEPAM [Concomitant]
     Indication: MUSCLE SPASTICITY
     Dosage: UNK
     Route: 048
  3. ENAPRIL [Concomitant]
     Indication: BLOOD PRESSURE

REACTIONS (15)
  - Myocardial infarction [Recovered/Resolved]
  - Cerebrovascular accident [Recovered/Resolved]
  - Arterial occlusive disease [Not Recovered/Not Resolved]
  - Haemorrhage [Recovered/Resolved]
  - Rectal haemorrhage [Not Recovered/Not Resolved]
  - Flatulence [Recovered/Resolved]
  - Back pain [Recovered/Resolved]
  - Hypoaesthesia [Recovered/Resolved]
  - Chest pain [Recovering/Resolving]
  - Pain in extremity [Not Recovered/Not Resolved]
  - Joint swelling [Not Recovered/Not Resolved]
  - Erythema [Not Recovered/Not Resolved]
  - Off label use [Unknown]
  - Therapeutic response unexpected [Unknown]
  - Expired drug administered [Unknown]
